FAERS Safety Report 18936334 (Version 1)
Quarter: 2021Q1

REPORT INFORMATION
  Report Type: Spontaneous
  Country: GB (occurrence: GB)
  Receive Date: 20210224
  Receipt Date: 20210224
  Transmission Date: 20210420
  Serious: Yes (Death)
  Sender: FDA-Public Use
  Company Number: GB-OTSUKA-2021_006138

PATIENT
  Age: 80 Year
  Sex: Female

DRUGS (1)
  1. ABILIFY MAINTENA [Suspect]
     Active Substance: ARIPIPRAZOLE
     Indication: PRODUCT USED FOR UNKNOWN INDICATION
     Dosage: 400 MG, ONCE EVERY 4 WEEKS
     Route: 065
     Dates: start: 202008, end: 202012

REACTIONS (2)
  - Therapy interrupted [Unknown]
  - Death [Fatal]

NARRATIVE: CASE EVENT DATE: 202012
